FAERS Safety Report 4924837-5 (Version None)
Quarter: 2006Q1

REPORT INFORMATION
  Report Type: 
  Country: None (occurrence: None)
  Receive Date: 20060227
  Receipt Date: 20050824
  Transmission Date: 20060701
  Serious: Yes (Hospitalization)
  Sender: FDA-Public Use
  Company Number: US-MERCK-0508USA04287

PATIENT
  Age: 56 Year
  Sex: Male
  Weight: 105 kg

DRUGS (2)
  1. VIOXX [Suspect]
     Indication: PAIN
     Route: 048
     Dates: start: 20031017, end: 20040803
  2. VIOXX [Suspect]
     Indication: RHEUMATOID ARTHRITIS
     Route: 048
     Dates: start: 20031017, end: 20040803

REACTIONS (3)
  - ACUTE MYOCARDIAL INFARCTION [None]
  - DEPRESSION [None]
  - URINARY TRACT INFECTION [None]
